FAERS Safety Report 15932758 (Version 1)
Quarter: 2019Q1

REPORT INFORMATION
  Report Type: Spontaneous
  Country: AU (occurrence: AU)
  Receive Date: 20190207
  Receipt Date: 20190207
  Transmission Date: 20190417
  Serious: Yes (Hospitalization)
  Sender: FDA-Public Use
  Company Number: AU-AMREGENT-20190188

PATIENT
  Age: 66 Year
  Sex: Female

DRUGS (1)
  1. FERINJECT [Suspect]
     Active Substance: FERRIC CARBOXYMALTOSE
     Dosage: UNKNOWN
     Route: 041
     Dates: start: 2016

REACTIONS (3)
  - Hospitalisation [Unknown]
  - Contusion [Unknown]
  - Haemosiderin stain [Recovered/Resolved]

NARRATIVE: CASE EVENT DATE: 2016
